APPROVED DRUG PRODUCT: BORTEZOMIB
Active Ingredient: BORTEZOMIB
Strength: 3.5MG/1.4ML (2.5MG/ML)
Dosage Form/Route: SOLUTION;INTRAVENOUS, SUBCUTANEOUS
Application: N212782 | Product #001
Applicant: SHILPA MEDICARE LTD
Approved: Aug 26, 2024 | RLD: Yes | RS: Yes | Type: RX